FAERS Safety Report 6749467-4 (Version None)
Quarter: 2010Q2

REPORT INFORMATION
  Report Type: 
  Country: None (occurrence: None)
  Receive Date: 20100527
  Receipt Date: 20100527
  Transmission Date: 20101027
  Serious: Yes (Hospitalization)
  Sender: FDA-Public Use
  Company Number: None

PATIENT
  Sex: Male
  Weight: 49.8957 kg

DRUGS (1)
  1. BACTRIM [Suspect]
     Indication: URINARY TRACT INFECTION
     Dosage: 800 MG- 160 MG TWICE/DAILY ORAL
     Route: 048
     Dates: start: 20091020, end: 20091028

REACTIONS (7)
  - HEADACHE [None]
  - HEPATIC ENZYME INCREASED [None]
  - HEPATIC FUNCTION ABNORMAL [None]
  - HOSPITALISATION [None]
  - JAUNDICE [None]
  - NAUSEA [None]
  - URTICARIA [None]
